FAERS Safety Report 8917393 (Version 3)
Quarter: 2012Q4

REPORT INFORMATION
  Report Type: 
  Country: US (occurrence: US)
  Receive Date: 20121120
  Receipt Date: 20121207
  Transmission Date: 20130627
  Serious: Yes (Hospitalization, Other)
  Sender: FDA-Public Use
  Company Number: US-PFIZER INC-2012290158

PATIENT
  Age: 39 Year
  Sex: Male
  Weight: 86.17 kg

DRUGS (13)
  1. LYRICA [Suspect]
     Indication: PAIN NERVE
     Dosage: 150 mg, 3x/day
     Route: 048
     Dates: start: 2002, end: 201210
  2. LYRICA [Suspect]
     Indication: ELECTRIC SHOCK
  3. LYRICA [Suspect]
     Indication: NERVE DAMAGE
  4. LYRICA [Suspect]
     Indication: PARAESTHESIA
  5. LYRICA [Suspect]
     Indication: RADICULOPATHY
  6. LYRICA [Suspect]
     Indication: NEUROPATHY
  7. VICODIN [Concomitant]
     Dosage: UNK
  8. LISINOPRIL [Concomitant]
     Dosage: UNK
  9. XANAX [Concomitant]
     Dosage: UNK
  10. OXYBUTYNIN [Concomitant]
     Dosage: UNK
  11. FLONASE [Concomitant]
     Dosage: UNK
  12. FLEXERIL [Concomitant]
     Dosage: UNK
  13. FOLBEE [Concomitant]
     Dosage: UNK

REACTIONS (3)
  - Back disorder [Unknown]
  - Blood pressure abnormal [Not Recovered/Not Resolved]
  - Pain [Not Recovered/Not Resolved]
